FAERS Safety Report 9461485 (Version 1)
Quarter: 2013Q3

REPORT INFORMATION
  Report Type: Report from Study
  Country: FR (occurrence: FR)
  Receive Date: 20130816
  Receipt Date: 20130816
  Transmission Date: 20140515
  Serious: Yes (Hospitalization)
  Sender: FDA-Public Use
  Company Number: PHHY2013FR087956

PATIENT
  Age: 76 Year
  Sex: Female
  Weight: 63 kg

DRUGS (9)
  1. TASIGNA [Suspect]
     Indication: CHRONIC MYELOID LEUKAEMIA
     Dosage: 400 MG, BID
     Route: 048
     Dates: start: 20120626
  2. COVERSYL [Concomitant]
     Indication: HYPERTENSION
     Dosage: 2.5 MG, QD
     Dates: start: 2002
  3. KARDEGIC [Concomitant]
     Dosage: 75 MG, QD
     Dates: start: 2002
  4. BRILIQUE [Concomitant]
     Dosage: 2 DF
     Route: 048
  5. LOVENOX [Concomitant]
     Dosage: 0.6 ML, BID
  6. PLAVIX [Concomitant]
  7. AMLOR [Concomitant]
  8. TAHOR [Concomitant]
  9. BISOPROLOL [Concomitant]

REACTIONS (4)
  - Angina pectoris [Recovered/Resolved]
  - Chest pain [Recovered/Resolved]
  - Pain in extremity [Recovered/Resolved]
  - Musculoskeletal pain [Recovered/Resolved]
